FAERS Safety Report 6756901-2 (Version None)
Quarter: 2010Q2

REPORT INFORMATION
  Report Type: 
  Country: None (occurrence: None)
  Receive Date: 20100604
  Receipt Date: 20100524
  Transmission Date: 20101027
  Serious: Yes (Hospitalization)
  Sender: FDA-Public Use
  Company Number: US-PFIZER INC-2010064851

PATIENT
  Age: 15 Month
  Sex: Male
  Weight: 80 kg

DRUGS (1)
  1. ZIPRASIDONE HCL [Suspect]
     Dosage: UNK

REACTIONS (2)
  - DEPRESSED LEVEL OF CONSCIOUSNESS [None]
  - RESPIRATORY FAILURE [None]
